FAERS Safety Report 9973648 (Version 2)
Quarter: 2014Q2

REPORT INFORMATION
  Report Type: Report from Study
  Country: JP (occurrence: JP)
  Receive Date: 20140306
  Receipt Date: 20140407
  Transmission Date: 20141212
  Serious: Yes (Life-Threatening, Hospitalization)
  Sender: FDA-Public Use
  Company Number: JP-TAKEDA-2014TJP002240

PATIENT
  Age: 86 Year
  Sex: Male
  Weight: 53.3 kg

DRUGS (7)
  1. ACTOS TABLETS 30 [Suspect]
     Indication: TYPE 2 DIABETES MELLITUS
     Dosage: 15 MG, 1 DAYS
     Route: 048
  2. BLOPRESS [Concomitant]
     Dosage: 8 MG, 1 DAYS
     Route: 048
  3. AMARYL [Concomitant]
     Indication: TYPE 2 DIABETES MELLITUS
     Dosage: 6 MG, 1 DAYS
     Route: 048
     Dates: start: 20120720
  4. NORVASC [Concomitant]
     Dosage: 5 MG, 1 DAYS
     Route: 048
  5. LIVALO [Concomitant]
     Dosage: 2 MG,1 DAYS
     Route: 048
  6. PANALDINE [Concomitant]
     Dosage: 200 MG, 1 DAYS
     Route: 048
  7. ALOGLIPTIN [Suspect]
     Indication: TYPE 2 DIABETES MELLITUS
     Dosage: 25 MG, QD
     Route: 048
     Dates: start: 20120720, end: 20130819

REACTIONS (2)
  - Carotid artery stenosis [Recovered/Resolved]
  - Syncope [Recovered/Resolved]
